FAERS Safety Report 25106236 (Version 1)
Quarter: 2025Q1

REPORT INFORMATION
  Report Type: Spontaneous
  Country: US (occurrence: None)
  Receive Date: 20250320
  Receipt Date: 20250320
  Transmission Date: 20250409
  Serious: Yes (Life-Threatening, Hospitalization)
  Sender: FDA-CTU
  Company Number: None

PATIENT
  Age: 64 Year
  Sex: Male
  Weight: 102 kg

DRUGS (5)
  1. ONDANSETRON [Suspect]
     Active Substance: ONDANSETRON
     Indication: Nausea
  2. ONDANSETRON [Suspect]
     Active Substance: ONDANSETRON
     Indication: Vomiting
  3. CITALOPRAM [Suspect]
     Active Substance: CITALOPRAM
  4. TRAZODONE [Suspect]
     Active Substance: TRAZODONE HYDROCHLORIDE
  5. GABAPENTIN [Suspect]
     Active Substance: GABAPENTIN

REACTIONS (7)
  - Electrocardiogram QT prolonged [None]
  - Ventricular tachycardia [None]
  - Pleural effusion [None]
  - Pneumothorax [None]
  - Clostridium difficile infection [None]
  - Urinary tract infection [None]
  - Cirrhosis alcoholic [None]

NARRATIVE: CASE EVENT DATE: 20241203
